FAERS Safety Report 5608892-5 (Version None)
Quarter: 2008Q1

REPORT INFORMATION
  Report Type: 
  Country: None (occurrence: None)
  Receive Date: 20080131
  Receipt Date: 20080121
  Transmission Date: 20080703
  Serious: Yes (Other)
  Sender: FDA-Public Use
  Company Number: PHEH2008US01068

PATIENT
  Age: 84 Year
  Sex: Female

DRUGS (10)
  1. RECLAST [Suspect]
     Indication: OSTEOPOROSIS POSTMENOPAUSAL
     Dosage: 5 MG, UNK
  2. ARTHROTEC [Concomitant]
  3. DURAGESIC-100 [Concomitant]
  4. PREMARIN [Concomitant]
  5. PAXIL [Concomitant]
  6. NEXIUM [Concomitant]
  7. CRESTOR [Concomitant]
  8. DARVOCET-N 100 [Concomitant]
  9. CALCIUM GLUCONATE [Concomitant]
  10. FLAXSEED OIL [Concomitant]

REACTIONS (4)
  - BLOOD CREATININE INCREASED [None]
  - DIARRHOEA [None]
  - FAECES DISCOLOURED [None]
  - URINE OUTPUT DECREASED [None]
